FAERS Safety Report 10900533 (Version 1)
Quarter: 2015Q1

REPORT INFORMATION
  Report Type: Report from Study
  Country: AU (occurrence: AU)
  Receive Date: 20150310
  Receipt Date: 20150310
  Transmission Date: 20150721
  Serious: Yes (Hospitalization, Other)
  Sender: FDA-Public Use
  Company Number: AU-ROCHE-1548908

PATIENT
  Age: 58 Year
  Sex: Female

DRUGS (1)
  1. ACTEMRA [Suspect]
     Active Substance: TOCILIZUMAB
     Indication: RHEUMATOID ARTHRITIS
     Route: 042
     Dates: start: 20120306

REACTIONS (12)
  - Diarrhoea [Unknown]
  - Lower respiratory tract infection [Recovered/Resolved]
  - Lower respiratory tract infection [Recovered/Resolved]
  - Food intolerance [Unknown]
  - Acute myocardial infarction [Recovered/Resolved with Sequelae]
  - Tooth abscess [Recovered/Resolved]
  - Mouth ulceration [Recovered/Resolved]
  - Arthropod bite [Recovered/Resolved]
  - Abdominal pain [Unknown]
  - Arthropod sting [Recovered/Resolved]
  - Chest pain [Unknown]
  - Mouth haemorrhage [Recovered/Resolved]

NARRATIVE: CASE EVENT DATE: 201311
